FAERS Safety Report 4659692-4 (Version None)
Quarter: 2005Q2

REPORT INFORMATION
  Report Type: 
  Country: None (occurrence: None)
  Receive Date: 20050420
  Receipt Date: 20050404
  Transmission Date: 20051028
  Serious: No
  Sender: FDA-Public Use
  Company Number: PHEH2005US03198

PATIENT
  Age: 82 Year
  Sex: Male

DRUGS (1)
  1. ENABLEX [Suspect]
     Indication: HYPERTONIC BLADDER
     Dosage: 7.5 MG QD
     Dates: start: 20050314

REACTIONS (3)
  - CONDITION AGGRAVATED [None]
  - POLLAKIURIA [None]
  - URINARY INCONTINENCE [None]
